FAERS Safety Report 14404876 (Version 2)
Quarter: 2018Q1

REPORT INFORMATION
  Report Type: Report from Study
  Country: PL (occurrence: PL)
  Receive Date: 20180118
  Receipt Date: 20180123
  Transmission Date: 20180509
  Serious: Yes (Death)
  Sender: FDA-Public Use
  Company Number: PL-ROCHE-2003573

PATIENT
  Age: 65 Year
  Sex: Female
  Weight: 59 kg

DRUGS (20)
  1. DENOSUMAB [Concomitant]
     Active Substance: DENOSUMAB
     Indication: PROPHYLAXIS
     Route: 065
     Dates: start: 20170704
  2. THEALOZ DUO [Concomitant]
     Indication: DRY EYE
     Route: 065
     Dates: start: 20161220
  3. MAGNEZIN (POLAND) [Concomitant]
     Indication: VENTRICULAR ARRHYTHMIA
     Route: 065
     Dates: start: 20170323
  4. PERTUZUMAB. [Suspect]
     Active Substance: PERTUZUMAB
     Dosage: DATE OF MOST RECENT DOSE PRIOR TO ADVERSE EVENT (AE) ONSET: 11/SEP/2017?MAINTAINANCE DOSE
     Route: 042
  5. OMEPRAZOLUM [Concomitant]
     Indication: PROPHYLAXIS
     Route: 065
     Dates: start: 20160620
  6. SERONIL [Concomitant]
     Active Substance: FLUOXETINE HYDROCHLORIDE
     Indication: DEPRESSION
     Route: 065
     Dates: start: 20160817
  7. TRASTUZUMAB. [Suspect]
     Active Substance: TRASTUZUMAB
     Indication: HER-2 POSITIVE BREAST CANCER
     Dosage: DATE OF MOST RECENT DOSE PRIOR TO ADVERSE EVENT (AE) ONSET: 11/SEP/2017?600 MG/5 ML
     Route: 058
     Dates: start: 20160621
  8. DOCETAXEL. [Suspect]
     Active Substance: DOCETAXEL
     Indication: HER-2 POSITIVE BREAST CANCER
     Dosage: DATE OF MOST RECENT DOSE PRIOR TO ADVERSE EVENT (AE) ONSET: 23/JAN/2017
     Route: 042
     Dates: start: 20160621
  9. DICORTINEFF LIQUID [Concomitant]
     Indication: DRY EYE
     Route: 065
     Dates: start: 20170123
  10. ACARD [Concomitant]
     Active Substance: ASPIRIN
     Indication: HYPERTENSION
     Route: 065
  11. ACARD [Concomitant]
     Active Substance: ASPIRIN
     Indication: PROPHYLAXIS
     Route: 065
     Dates: start: 1994
  12. LETROZOLE. [Concomitant]
     Active Substance: LETROZOLE
     Indication: BREAST CANCER
     Route: 065
     Dates: start: 20170221
  13. AMLOZEK [Concomitant]
     Active Substance: AMLODIPINE BESYLATE
     Indication: HYPERTENSION
     Route: 065
     Dates: start: 1994
  14. VALSACOR [Concomitant]
     Active Substance: VALSARTAN
     Indication: HYPERTENSION
     Route: 065
     Dates: start: 20160909
  15. KALIPOZ [Concomitant]
     Active Substance: POTASSIUM CHLORIDE
     Indication: VENTRICULAR ARRHYTHMIA
     Route: 065
     Dates: start: 20170323
  16. VITRUM CALCIUM [Concomitant]
     Indication: PROPHYLAXIS
     Route: 065
     Dates: start: 20170221
  17. BISOPROLOL [Concomitant]
     Active Substance: BISOPROLOL
     Indication: VENTRICULAR ARRHYTHMIA
     Route: 065
     Dates: start: 20170810
  18. PERTUZUMAB. [Suspect]
     Active Substance: PERTUZUMAB
     Indication: HER-2 POSITIVE BREAST CANCER
     Dosage: LOADING DOSE
     Route: 042
     Dates: start: 20160621
  19. ZOCOR [Concomitant]
     Active Substance: SIMVASTATIN
     Indication: HYPERCHOLESTEROLAEMIA
  20. MEGESTROLIASETAATTI [Concomitant]
     Indication: DECREASED APPETITE
     Route: 065
     Dates: start: 20170418

REACTIONS (1)
  - Death [Fatal]

NARRATIVE: CASE EVENT DATE: 20170920
